FAERS Safety Report 9512090 (Version 1)
Quarter: 2013Q3

REPORT INFORMATION
  Report Type: Report from Study
  Country: US (occurrence: US)
  Receive Date: 20130910
  Receipt Date: 20130910
  Transmission Date: 20140515
  Serious: Yes (Other)
  Sender: FDA-Public Use
  Company Number: US-ROCHE-1270487

PATIENT
  Sex: Female
  Weight: 53.57 kg

DRUGS (17)
  1. HERCEPTIN [Suspect]
     Indication: HER-2 POSITIVE BREAST CANCER
     Route: 065
  2. XELODA [Suspect]
     Indication: HER-2 POSITIVE BREAST CANCER
     Route: 065
  3. AREDIA [Concomitant]
  4. TAXOL [Concomitant]
  5. ZOMETA [Concomitant]
  6. GEMZAR [Concomitant]
  7. TAXOTERE [Concomitant]
  8. DOXORUBICIN HYDROCHLORIDE [Concomitant]
  9. NAVELBINE [Concomitant]
  10. WARFARIN SODIUM [Concomitant]
     Route: 048
     Dates: start: 20121119
  11. SIMVASTATIN [Concomitant]
     Route: 048
     Dates: start: 20110823
  12. OXYCODONE [Concomitant]
     Route: 065
  13. BENADRYL (UNITED STATES) [Concomitant]
  14. TYKERB [Concomitant]
  15. IXEMPRA [Concomitant]
  16. CARBOPLATIN [Concomitant]
  17. HALAVEN [Concomitant]

REACTIONS (16)
  - Metastases to pleura [Unknown]
  - Pulmonary embolism [Unknown]
  - Skin mass [Unknown]
  - Back pain [Unknown]
  - Weight decreased [Unknown]
  - Fatigue [Unknown]
  - Decreased appetite [Unknown]
  - Cough [Unknown]
  - Nausea [Unknown]
  - Nervousness [Unknown]
  - Metastases to liver [Unknown]
  - Toxicity to various agents [Unknown]
  - Pallor [Unknown]
  - Oral candidiasis [Unknown]
  - Abdominal distension [Unknown]
  - Neck pain [Unknown]
